FAERS Safety Report 6472223-1 (Version None)
Quarter: 2009Q4

REPORT INFORMATION
  Report Type: 
  Country: None (occurrence: None)
  Receive Date: 20091203
  Receipt Date: 20091123
  Transmission Date: 20100525
  Serious: Yes (Other)
  Sender: FDA-Public Use
  Company Number: CA-PFIZER INC-2009301921

PATIENT
  Age: 33 Year
  Sex: Male

DRUGS (3)
  1. ATGAM [Suspect]
     Indication: APLASTIC ANAEMIA
     Dosage: 40 MG/KG, 1X/DAY
     Route: 042
  2. HYDROCORTISONE [Concomitant]
     Dosage: 100 MG, UNK
     Route: 042
  3. DIPHENHYDRAMINE [Concomitant]
     Dosage: 50 MG, UNK
     Route: 042

REACTIONS (2)
  - HYPOXIA [None]
  - LUNG INFILTRATION [None]
